FAERS Safety Report 17402726 (Version 3)
Quarter: 2020Q1

REPORT INFORMATION
  Report Type: Spontaneous
  Country: DE (occurrence: DE)
  Receive Date: 20200211
  Receipt Date: 20200320
  Transmission Date: 20200409
  Serious: Yes (Death, Hospitalization)
  Sender: FDA-Public Use
  Company Number: DE-JNJFOC-20200152731

PATIENT
  Age: 79 Year
  Sex: Female
  Weight: 50 kg

DRUGS (3)
  1. RIVAROXABAN [Suspect]
     Active Substance: RIVAROXABAN
     Indication: PRODUCT USED FOR UNKNOWN INDICATION
     Dosage: 15 MG, QD
     Route: 048
     Dates: start: 201709
  2. ACICLOVIR [Concomitant]
     Active Substance: ACYCLOVIR
     Indication: HERPES ZOSTER
     Dosage: 500 MG, BID
     Route: 048
  3. PREDNISON [Concomitant]
     Active Substance: PREDNISONE

REACTIONS (4)
  - Cerebral ventricular rupture [Fatal]
  - Cerebral haemorrhage [Fatal]
  - Haematuria [Fatal]
  - Coma [Fatal]

NARRATIVE: CASE EVENT DATE: 20200127
